FAERS Safety Report 11379890 (Version 1)
Quarter: 2015Q3

REPORT INFORMATION
  Report Type: Spontaneous
  Country: US (occurrence: None)
  Receive Date: 20150813
  Receipt Date: 20150813
  Transmission Date: 20151125
  Serious: Yes (Disabling)
  Sender: FDA-Public Use
  Company Number: None

PATIENT
  Age: 40 Year
  Sex: Female
  Weight: 72.58 kg

DRUGS (4)
  1. LIQUID POTASSIUM CHLORIDE [Suspect]
     Active Substance: POTASSIUM CHLORIDE
     Indication: BLOOD POTASSIUM DECREASED
     Dosage: 40 MEQ AM, 20 MEQ PM
     Route: 048
     Dates: start: 20150804, end: 20150809
  2. NITRO PATCH [Concomitant]
     Active Substance: NITROGLYCERIN
  3. NITRO SPRAY [Concomitant]
  4. VITAMIN D [Concomitant]
     Active Substance: CHOLECALCIFEROL

REACTIONS (9)
  - Dyspepsia [None]
  - Product substitution issue [None]
  - Diarrhoea [None]
  - Vomiting [None]
  - Muscle spasms [None]
  - Blood potassium decreased [None]
  - Palpitations [None]
  - Nausea [None]
  - Product formulation issue [None]

NARRATIVE: CASE EVENT DATE: 20150804
